FAERS Safety Report 14912954 (Version 2)
Quarter: 2018Q2

REPORT INFORMATION
  Report Type: Spontaneous
  Country: US (occurrence: US)
  Receive Date: 20180518
  Receipt Date: 20180530
  Transmission Date: 20180711
  Serious: Yes (Other)
  Sender: FDA-Public Use
  Company Number: US-IMPAX LABORATORIES, INC-2018-IPXL-01642

PATIENT
  Age: 20 Month
  Sex: Female

DRUGS (6)
  1. HYDROCORTISONE. [Suspect]
     Active Substance: HYDROCORTISONE
     Dosage: UNK; NEW BATCH
     Route: 065
  2. HYDROCORTISONE. [Suspect]
     Active Substance: HYDROCORTISONE
     Indication: ADRENOGENITAL SYNDROME
     Dosage: 2.5 MG, TID (31 MG/M^2/DAY)
     Route: 065
  3. HYDROCORTISONE. [Suspect]
     Active Substance: HYDROCORTISONE
     Dosage: 5 MG, DAILY (17 MG/M^2/D) IN THREE DIVIDED DOSES
     Route: 065
  4. FLUDROCORTISONE [Concomitant]
     Active Substance: FLUDROCORTISONE
     Indication: ADRENOGENITAL SYNDROME
     Dosage: 0.1 MG, BID
     Route: 065
  5. HYDROCORTISONE. [Suspect]
     Active Substance: HYDROCORTISONE
     Dosage: 1 MG, TID (7.5 MG/M^2/DAY)
     Route: 065
  6. SODIUM CHLORIDE. [Concomitant]
     Active Substance: SODIUM CHLORIDE
     Indication: ADRENOGENITAL SYNDROME
     Dosage: 250 MG, QID
     Route: 065

REACTIONS (3)
  - Product preparation error [Unknown]
  - Cushing^s syndrome [Recovered/Resolved]
  - Wrong dose [Unknown]
